FAERS Safety Report 22057838 (Version 1)
Quarter: 2023Q1

REPORT INFORMATION
  Report Type: Report from Study
  Country: US (occurrence: US)
  Receive Date: 20230303
  Receipt Date: 20230303
  Transmission Date: 20230418
  Serious: No
  Sender: FDA-Public Use
  Company Number: US-ORG100014127-2022001294

PATIENT
  Age: 37 Year
  Sex: Female

DRUGS (11)
  1. LYSODREN [Suspect]
     Active Substance: MITOTANE
     Indication: Adrenal gland cancer
     Dosage: 02 TABLETS TID
     Route: 048
     Dates: start: 20220720
  2. LYSODREN [Suspect]
     Active Substance: MITOTANE
     Indication: Adrenal gland cancer
     Dosage: 03 TABLETS TID
     Route: 048
     Dates: start: 20220720
  3. METOPIRONE [Suspect]
     Active Substance: METYRAPONE
     Indication: Adrenal gland cancer
     Dosage: 03 CAPSULES TID
     Route: 048
     Dates: start: 20220803
  4. AMLODIPINE [Concomitant]
     Active Substance: AMLODIPINE BESYLATE
     Indication: Product used for unknown indication
     Dosage: 10 MG
  5. CARVEDILOL TAB 12.5MG [Concomitant]
     Indication: Product used for unknown indication
     Dosage: 12,5 MG
  6. HYDRALAZINE TAB 50MG [Concomitant]
     Indication: Product used for unknown indication
     Dosage: 50 MG
  7. LOSARTAN POT TAB 50MG [Concomitant]
     Indication: Product used for unknown indication
     Dosage: 50 MG
  8. OXYCONTIN TAB 20MG ER [Concomitant]
     Indication: Product used for unknown indication
     Dosage: 20 MG
  9. POT CHLORIDE TAB 10MEQ ER [Concomitant]
     Indication: Product used for unknown indication
  10. SPIRONOLACTONE [Concomitant]
     Active Substance: SPIRONOLACTONE
     Indication: Product used for unknown indication
     Dosage: 50 MG
  11. VENTOLIN HFA AER [Concomitant]
     Indication: Product used for unknown indication

REACTIONS (3)
  - Blood pressure abnormal [Recovered/Resolved]
  - Nausea [Not Recovered/Not Resolved]
  - Off label use [Not Recovered/Not Resolved]

NARRATIVE: CASE EVENT DATE: 20220803
